FAERS Safety Report 7947021-X (Version None)
Quarter: 2011Q4

REPORT INFORMATION
  Report Type: 
  Country: None (occurrence: None)
  Receive Date: 20111129
  Receipt Date: 20110927
  Transmission Date: 20120403
  Serious: No
  Sender: FDA-Public Use
  Company Number: US-ASTRAZENECA-2011SE58050

PATIENT
  Age: 46 Year
  Sex: Female

DRUGS (1)
  1. VIMOVO [Suspect]
     Indication: ARTHRALGIA
     Route: 048

REACTIONS (2)
  - OFF LABEL USE [None]
  - CONSTIPATION [None]
